FAERS Safety Report 4299482-8 (Version None)
Quarter: 2004Q1

REPORT INFORMATION
  Report Type: 
  Country: None (occurrence: None)
  Receive Date: 20040219
  Receipt Date: 20040209
  Transmission Date: 20041129
  Serious: Yes (Other)
  Sender: FDA-Public Use
  Company Number: GB-GLAXOSMITHKLINE-B0322717A

PATIENT
  Age: 34 Year
  Sex: Female

DRUGS (3)
  1. ZYBAN [Suspect]
     Dosage: 150MG PER DAY
     Route: 048
     Dates: start: 20040114, end: 20040121
  2. MICONAZOLE [Concomitant]
     Route: 061
     Dates: start: 20031229
  3. TIMODINE [Concomitant]
     Indication: FUNGAL INFECTION
     Route: 061
     Dates: start: 20031205

REACTIONS (1)
  - SKIN REACTION [None]
